FAERS Safety Report 9848194 (Version 1)
Quarter: 2013Q4

REPORT INFORMATION
  Report Type: Spontaneous
  Country: US (occurrence: None)
  Receive Date: 20131226
  Receipt Date: 20131226
  Transmission Date: 20140711
  Serious: No
  Sender: FDA-Public Use
  Company Number: PHEH2013US006197

PATIENT
  Age: 81 Year
  Sex: Male

DRUGS (7)
  1. ARCAPTA (INDACATEROL) UNKNOWN [Suspect]
  2. COREG (CARVEDILOL) [Concomitant]
  3. ENALAPRIL (ENALAPRIL) [Concomitant]
  4. PLAVIX (CLOPIDOGREL BISULFATE) (CLOPIDOGREL BISULFATE) [Concomitant]
  5. PROTONIX (PANTOPRZOLE SODIUM SESQUIHYDRATE) [Concomitant]
  6. METAMUCIL (PLANTAGO OVATA) [Concomitant]
  7. PROBIOTIC /07343501/ (BIFIDOBACTERIUM INFANTIS, LACTOBACILLUS ACIDOPHILUS) [Concomitant]

REACTIONS (2)
  - Drug ineffective [None]
  - Cough [None]
